FAERS Safety Report 4609723-2 (Version None)
Quarter: 2005Q1

REPORT INFORMATION
  Report Type: 
  Country: None (occurrence: None)
  Receive Date: 20050314
  Receipt Date: 20050222
  Transmission Date: 20050727
  Serious: No
  Sender: FDA-Public Use
  Company Number: 10421

PATIENT
  Age: 74 Year
  Sex: Male

DRUGS (4)
  1. CARBOPLATIN [Suspect]
     Indication: BLADDER CANCER
  2. GEMCITABINE [Suspect]
     Indication: BLADDER CANCER
     Dosage: 11.1 G/M2 TOTAL, IV
     Route: 042
  3. DEXAMETHASONE [Concomitant]
  4. ONDANSETRON [Concomitant]

REACTIONS (8)
  - BLADDER CANCER [None]
  - BLOOD PH INCREASED [None]
  - CRACKLES LUNG [None]
  - DYSPNOEA [None]
  - MALIGNANT NEOPLASM PROGRESSION [None]
  - PCO2 DECREASED [None]
  - PO2 DECREASED [None]
  - PULMONARY FUNCTION TEST ABNORMAL [None]
